FAERS Safety Report 6726425-7 (Version None)
Quarter: 2010Q2

REPORT INFORMATION
  Report Type: 
  Country: None (occurrence: None)
  Receive Date: 20100514
  Receipt Date: 20100505
  Transmission Date: 20101027
  Serious: Yes (Other)
  Sender: FDA-Public Use
  Company Number: CA-JNJFOC-20100502030

PATIENT
  Sex: Male
  Weight: 70 kg

DRUGS (11)
  1. REMICADE [Suspect]
     Indication: RHEUMATOID ARTHRITIS
     Route: 042
  2. REMICADE [Suspect]
     Route: 042
  3. ASPIRIN [Suspect]
     Indication: DRUG USE FOR UNKNOWN INDICATION
  4. LIPIDIL [Concomitant]
  5. METOPROLOL SUCCINATE [Concomitant]
  6. HYDROXYCHLOROQUINE SULFATE [Concomitant]
  7. CELEBREX [Concomitant]
  8. ALTACE [Concomitant]
  9. FOLIC ACID [Concomitant]
  10. METHOTREXATE [Concomitant]
  11. TYLENOL W/ CODEINE [Concomitant]

REACTIONS (1)
  - EYE HAEMORRHAGE [None]
